FAERS Safety Report 7637159-9 (Version None)
Quarter: 2011Q3

REPORT INFORMATION
  Report Type: 
  Country: None (occurrence: None)
  Receive Date: 20110726
  Receipt Date: 20110714
  Transmission Date: 20111222
  Serious: Yes (Hospitalization)
  Sender: FDA-Public Use
  Company Number: IT-PFIZER INC-2011159310

PATIENT
  Age: 53 Year
  Sex: Female
  Weight: 80 kg

DRUGS (5)
  1. LANSOPRAZOLE [Concomitant]
     Indication: PROPHYLAXIS
     Dates: start: 20110523
  2. LEVETIRACETAM [Concomitant]
     Indication: PROPHYLAXIS
     Route: 048
     Dates: start: 20110408
  3. ZOLPIDEM [Concomitant]
     Indication: INSOMNIA
     Dates: start: 20110607
  4. TORISEL [Suspect]
     Indication: GLIOBLASTOMA
     Route: 042
     Dates: start: 20110516, end: 20110705
  5. DEXAMETHASONE [Concomitant]
     Indication: PROPHYLAXIS
     Dates: start: 20110523

REACTIONS (2)
  - OSTEOARTHRITIS [None]
  - CARDIAC FAILURE CONGESTIVE [None]
